FAERS Safety Report 8540357-3 (Version None)
Quarter: 2012Q3

REPORT INFORMATION
  Report Type: 
  Country: None (occurrence: None)
  Receive Date: 20120726
  Receipt Date: 20120717
  Transmission Date: 20120928
  Serious: Yes (Other)
  Sender: FDA-Public Use
  Company Number: JP-ASTRAZENECA-2012SE51280

PATIENT
  Age: 77 Year
  Sex: Male

DRUGS (15)
  1. LIPITOR [Concomitant]
     Route: 048
  2. METFORMIN HCL [Concomitant]
     Route: 048
  3. HUMALOG [Concomitant]
  4. CASODEX [Suspect]
     Route: 048
     Dates: start: 20040901, end: 20041201
  5. CASODEX [Suspect]
     Route: 048
     Dates: start: 20060901, end: 20061201
  6. CEPHADOL [Concomitant]
     Route: 048
     Dates: start: 20120625
  7. CASODEX [Suspect]
     Indication: PROSTATE CANCER
     Route: 048
     Dates: start: 20031201, end: 20040401
  8. CASODEX [Suspect]
     Route: 048
     Dates: start: 20070620, end: 20071015
  9. CASODEX [Suspect]
     Route: 048
     Dates: start: 20120424
  10. ACTOS [Concomitant]
     Route: 048
  11. CASODEX [Suspect]
     Route: 048
     Dates: start: 20081203, end: 20090501
  12. PURSENNID [Concomitant]
     Route: 048
  13. LEUPROLIDE ACETATE [Concomitant]
     Route: 058
  14. LOSARTAN POTASSIUM [Concomitant]
     Route: 048
  15. ATELEC [Concomitant]
     Route: 048

REACTIONS (1)
  - PLATELET COUNT DECREASED [None]
